FAERS Safety Report 21177942 (Version 1)
Quarter: 2022Q3

REPORT INFORMATION
  Report Type: Spontaneous
  Country: CA (occurrence: CA)
  Receive Date: 20220805
  Receipt Date: 20220805
  Transmission Date: 20221027
  Serious: Yes (Other)
  Sender: FDA-Public Use
  Company Number: CA-PFIZER INC-202201029735

PATIENT
  Age: 53 Year
  Sex: Female

DRUGS (1)
  1. GABAPENTIN [Suspect]
     Active Substance: GABAPENTIN
     Dosage: 100 MG, 1X/DAY (AT BEDTIME)

REACTIONS (6)
  - Dystonia [Unknown]
  - Illness [Unknown]
  - Palpitations [Unknown]
  - Nausea [Unknown]
  - Muscle twitching [Unknown]
  - Tremor [Unknown]
